FAERS Safety Report 25123592 (Version 5)
Quarter: 2025Q4

REPORT INFORMATION
  Report Type: Report from Study
  Country: EU (occurrence: EU)
  Receive Date: 20250326
  Receipt Date: 20251115
  Transmission Date: 20260118
  Serious: Yes (Hospitalization, Other)
  Sender: AUROBINDO
  Company Number: EU-AUROBINDO-AUR-APL-2025-013025

PATIENT
  Age: 41 Year
  Sex: Female

DRUGS (7)
  1. PREGABALIN [Suspect]
     Active Substance: PREGABALIN
     Indication: Fibromyalgia
     Dosage: UNK ((AVERAGE DAILY DOSES RANGING FROM 1,200 TO 8,400 MG OF PREGABALIN)
     Route: 065
  2. PREGABALIN [Suspect]
     Active Substance: PREGABALIN
     Indication: Anxiety
     Dosage: 900 MILLIGRAM, ONCE A DAY
     Route: 065
  3. PREGABALIN [Suspect]
     Active Substance: PREGABALIN
     Dosage: 1600 MILLIGRAM, ONCE A DAY
     Route: 065
  4. PREGABALIN [Suspect]
     Active Substance: PREGABALIN
     Dosage: 1200 MILLIGRAM, ONCE A DAY
     Route: 065
  5. GABAPENTIN [Suspect]
     Active Substance: GABAPENTIN
     Indication: Drug use disorder
     Dosage: 2400 MILLIGRAM, ONCE A DAY (2400 MG PER DAY)
     Route: 065
  6. GABAPENTIN [Suspect]
     Active Substance: GABAPENTIN
     Indication: Drug detoxification
     Dosage: 2800 MILLIGRAM, ONCE A DAY (INCREASE TO 2800 MG PER DAY)
     Route: 065
  7. GABAPENTIN [Suspect]
     Active Substance: GABAPENTIN
     Dosage: 3000 MILLIGRAM, ONCE A DAY (INCREASE TO 3000 MG PER DAY)
     Route: 065

REACTIONS (10)
  - Drug use disorder [Unknown]
  - Drug dependence [Unknown]
  - Drug ineffective [Unknown]
  - Withdrawal syndrome [Unknown]
  - Drug abuse [Unknown]
  - Product prescribing issue [Unknown]
  - Off label use [Unknown]
  - Overdose [Unknown]
  - Intentional product use issue [Unknown]
  - Intentional product misuse [Unknown]
